FAERS Safety Report 19702597 (Version 2)
Quarter: 2022Q1

REPORT INFORMATION
  Report Type: Report from Study
  Country: CA (occurrence: CA)
  Receive Date: 20210815
  Receipt Date: 20220125
  Transmission Date: 20220423
  Serious: Yes (Hospitalization)
  Sender: FDA-Public Use
  Company Number: CA-NOVARTISPH-PHHY2016CA027989

PATIENT
  Age: 58 Year
  Sex: Female

DRUGS (4)
  1. SANDOSTATIN LAR DEPOT [Suspect]
     Active Substance: OCTREOTIDE ACETATE
     Indication: Diarrhoea
     Dosage: 40 MG, QMO
     Route: 030
     Dates: start: 20040101
  2. SANDOSTATIN LAR DEPOT [Suspect]
     Active Substance: OCTREOTIDE ACETATE
     Dosage: 30 MG, QMO
     Route: 030
     Dates: end: 201608
  3. SANDOSTATIN LAR DEPOT [Suspect]
     Active Substance: OCTREOTIDE ACETATE
     Dosage: 40 MG, Q3W
     Route: 065
  4. OCTREOTIDE [Suspect]
     Active Substance: OCTREOTIDE
     Indication: Diarrhoea
     Dosage: UNK
     Route: 065
     Dates: start: 20220111

REACTIONS (5)
  - Diarrhoea [Unknown]
  - Product use in unapproved indication [Unknown]
  - Inappropriate schedule of product administration [Unknown]
  - Drug ineffective [Unknown]
  - Flushing [Unknown]

NARRATIVE: CASE EVENT DATE: 20220101
